FAERS Safety Report 11664841 (Version 10)
Quarter: 2018Q2

REPORT INFORMATION
  Report Type: Report from Study
  Country: CR (occurrence: CR)
  Receive Date: 20151027
  Receipt Date: 20180604
  Transmission Date: 20180711
  Serious: Yes (Other)
  Sender: FDA-Public Use
  Company Number: PHHY2015CR136884

PATIENT
  Age: 44 Year
  Sex: Female
  Weight: 64 kg

DRUGS (5)
  1. VITAMIN D [Concomitant]
     Active Substance: CHOLECALCIFEROL
     Indication: PRODUCT USED FOR UNKNOWN INDICATION
     Dosage: 1 DF, QD
     Route: 048
  2. SANDOSTATIN LAR DEPOT [Suspect]
     Active Substance: OCTREOTIDE ACETATE
     Indication: ACROMEGALY
     Dosage: UNK UNK, QMO
     Route: 065
     Dates: start: 201209
  3. SANDOSTATIN LAR DEPOT [Suspect]
     Active Substance: OCTREOTIDE ACETATE
     Dosage: 30 MG, QMO
     Route: 030
     Dates: start: 20120924
  4. HYDROCORTISONE. [Concomitant]
     Active Substance: HYDROCORTISONE
     Indication: PRODUCT USED FOR UNKNOWN INDICATION
     Dosage: 2 DF, BID (2 TABLETS IN MORNING AND 2 TABLETS AT NIGHT)
     Route: 048
     Dates: start: 2012
  5. LEVOTIROXINA [Concomitant]
     Indication: HYPOTHYROIDISM
     Dosage: 2 UG, QD
     Route: 065

REACTIONS (27)
  - Uterine leiomyoma [Unknown]
  - Hormone level abnormal [Recovering/Resolving]
  - Arthralgia [Unknown]
  - Blood triglycerides increased [Unknown]
  - Diarrhoea [Recovered/Resolved]
  - Fatigue [Unknown]
  - Uterine haemorrhage [Unknown]
  - Gastrointestinal sounds abnormal [Recovered/Resolved]
  - Crying [Recovered/Resolved]
  - Abdominal discomfort [Unknown]
  - Gastrointestinal inflammation [Recovered/Resolved]
  - Epistaxis [Recovered/Resolved]
  - Eye pain [Unknown]
  - Headache [Not Recovered/Not Resolved]
  - Haematochezia [Unknown]
  - Joint injury [Unknown]
  - Back pain [Recovered/Resolved]
  - Neoplasm [Unknown]
  - Feeling abnormal [Unknown]
  - Vomiting [Recovered/Resolved]
  - Decreased appetite [Unknown]
  - Malaise [Unknown]
  - Nausea [Recovered/Resolved]
  - Arthropathy [Unknown]
  - Discomfort [Recovered/Resolved]
  - Hypertension [Unknown]
  - Abdominal pain [Recovered/Resolved]
